FAERS Safety Report 15265476 (Version 1)
Quarter: 2018Q3

REPORT INFORMATION
  Report Type: Spontaneous
  Country: ES (occurrence: ES)
  Receive Date: 20180810
  Receipt Date: 20180810
  Transmission Date: 20181010
  Serious: Yes (Other)
  Sender: FDA-Public Use
  Company Number: ES-009507513-2009-192604-NL

PATIENT
  Age: 34 Year
  Sex: Female

DRUGS (1)
  1. IMPLANON [Suspect]
     Active Substance: ETONOGESTREL
     Indication: CONTRACEPTION
     Dosage: CONTINUING: NA
     Route: 059
     Dates: start: 2001, end: 20051102

REACTIONS (2)
  - Superovulation [Recovered/Resolved with Sequelae]
  - Multiple pregnancy [Recovered/Resolved with Sequelae]

NARRATIVE: CASE EVENT DATE: 200602
